FAERS Safety Report 9341262 (Version 1)
Quarter: 2013Q2

REPORT INFORMATION
  Report Type: Report from Study
  Country: US (occurrence: US)
  Receive Date: 20130611
  Receipt Date: 20130611
  Transmission Date: 20140414
  Serious: Yes (Other)
  Sender: FDA-Public Use
  Company Number: US-ROCHE-1233961

PATIENT
  Age: 60 Year
  Sex: Male
  Weight: 93.8 kg

DRUGS (9)
  1. RIBAVIRIN [Suspect]
     Indication: HEPATITIS C
     Route: 048
     Dates: start: 20130205, end: 20130430
  2. SOFOSBUVIR [Suspect]
     Indication: HEPATITIS C
     Route: 048
     Dates: start: 20130205, end: 20130502
  3. SERTRALINE [Concomitant]
     Route: 065
     Dates: start: 20121215, end: 20130207
  4. VITAMIN C [Concomitant]
     Route: 065
     Dates: start: 2010
  5. LOSARTAN [Concomitant]
     Route: 065
     Dates: start: 2012
  6. HYDROCHLOROTHIAZIDE [Concomitant]
     Route: 065
     Dates: start: 2012
  7. ZOLPIDEM [Concomitant]
     Route: 065
     Dates: start: 2012
  8. ALPHA LIPOIC ACID [Concomitant]
     Route: 065
     Dates: start: 20130101
  9. BYSTOLIC [Concomitant]
     Route: 065
     Dates: start: 20130305

REACTIONS (3)
  - Eye swelling [Recovered/Resolved]
  - Rash [Recovered/Resolved]
  - Erythema [Recovered/Resolved]
